FAERS Safety Report 7914524-3 (Version None)
Quarter: 2011Q4

REPORT INFORMATION
  Report Type: 
  Country: None (occurrence: None)
  Receive Date: 20111115
  Receipt Date: 20111102
  Transmission Date: 20120403
  Serious: Yes (Hospitalization)
  Sender: FDA-Public Use
  Company Number: PHEH2011US05604

PATIENT
  Sex: Female

DRUGS (5)
  1. EXJADE [Suspect]
     Indication: SICKLE CELL ANAEMIA
     Dosage: 1500 MG, DAILY
     Route: 048
     Dates: start: 20060511
  2. LISINOPRIL [Concomitant]
     Dosage: 30 MG, UNK
     Dates: start: 20110120
  3. HYDROXYUREA [Concomitant]
     Dosage: 500 MG, UNK
     Dates: start: 20110120
  4. WARFARIN SODIUM [Concomitant]
     Dosage: 5 MG, UNK
     Dates: start: 20110815
  5. COUMADIN [Concomitant]
     Dosage: 5 MG, UNK
     Dates: start: 20110630

REACTIONS (3)
  - PANCYTOPENIA [None]
  - THROMBOSIS [None]
  - SICKLE CELL ANAEMIA WITH CRISIS [None]
